FAERS Safety Report 10188744 (Version 1)
Quarter: 2014Q2

REPORT INFORMATION
  Report Type: Spontaneous
  Country: FR (occurrence: FR)
  Receive Date: 20140522
  Receipt Date: 20140522
  Transmission Date: 20141212
  Serious: Yes (Death)
  Sender: FDA-Public Use
  Company Number: FR-ASTRAZENECA-2014SE34893

PATIENT
  Age: 60 Year
  Sex: Female

DRUGS (8)
  1. QUETIAPINE [Suspect]
     Route: 048
  2. BROMAZEPAM [Suspect]
     Route: 048
  3. ZOPICLONE [Suspect]
     Route: 048
  4. OXAZEPAM [Suspect]
     Route: 048
  5. ALPRAZOLAM [Suspect]
     Route: 048
  6. LORMETAZEPAM [Suspect]
     Route: 048
  7. LORAZEPAM [Suspect]
     Route: 048
  8. CYAMEMAZINE [Suspect]
     Route: 048

REACTIONS (3)
  - Overdose [Fatal]
  - Toxicity to various agents [Fatal]
  - Completed suicide [Fatal]
